FAERS Safety Report 5200411-0 (Version None)
Quarter: 2007Q1

REPORT INFORMATION
  Report Type: 
  Country: None (occurrence: None)
  Receive Date: 20070105
  Receipt Date: 20061226
  Transmission Date: 20070707
  Serious: Yes (Hospitalization)
  Sender: FDA-Public Use
  Company Number: JP-PFIZER INC-2005082659

PATIENT
  Sex: Female

DRUGS (14)
  1. IRINOTECAN HYDROCHLORIDE SOLUTION, STERILE [Suspect]
     Indication: GASTRIC CANCER
     Dosage: DAILY DOSE:80MG/M*2-FREQ:INTERMITTENT
     Route: 042
     Dates: start: 20050331, end: 20050506
  2. TEGAFUR [Suspect]
     Indication: GASTRIC CANCER
     Route: 048
     Dates: start: 20050331, end: 20050421
  3. TEGAFUR [Suspect]
     Route: 048
     Dates: start: 20050506, end: 20050516
  4. TEGAFUR [Suspect]
     Dosage: DAILY DOSE:50MG
     Route: 048
     Dates: start: 20050517, end: 20050517
  5. INTRALIPID 10% [Concomitant]
     Indication: NUTRITIONAL SUPPORT
     Dosage: DAILY DOSE:100ML
     Route: 042
     Dates: start: 20050331, end: 20050331
  6. INTRALIPID 10% [Concomitant]
     Dosage: DAILY DOSE:100ML
     Route: 042
     Dates: start: 20050531, end: 20050605
  7. MUCOSTA [Concomitant]
     Indication: DYSPEPSIA
     Route: 048
  8. GASMOTIN [Concomitant]
     Indication: DYSPEPSIA
     Route: 048
  9. ENZYMES [Concomitant]
     Indication: DYSPEPSIA
     Route: 048
  10. AMINOFLUID [Concomitant]
     Indication: NUTRITIONAL SUPPORT
     Dosage: DAILY DOSE:1000ML
     Route: 042
     Dates: start: 20050331, end: 20050331
  11. AMINOFLUID [Concomitant]
     Dosage: DAILY DOSE:1000ML
     Route: 042
     Dates: start: 20050531, end: 20050531
  12. AMINOFLUID [Concomitant]
     Dosage: DAILY DOSE:500ML
     Route: 042
     Dates: start: 20050601, end: 20050605
  13. GLYCERIN [Concomitant]
     Indication: CONSTIPATION
     Dosage: DAILY DOSE:120ML
     Route: 054
     Dates: start: 20050407, end: 20050407
  14. HALCION [Concomitant]
     Indication: INSOMNIA
     Route: 048
     Dates: start: 20050412, end: 20050415

REACTIONS (15)
  - ANOREXIA [None]
  - ASPARTATE AMINOTRANSFERASE INCREASED [None]
  - BACK PAIN [None]
  - BLOOD ALBUMIN DECREASED [None]
  - DIARRHOEA [None]
  - DIZZINESS [None]
  - EYE DISCHARGE [None]
  - FATIGUE [None]
  - HAEMOGLOBIN DECREASED [None]
  - HYPERKALAEMIA [None]
  - LEUKOPENIA [None]
  - MALAISE [None]
  - NEUTROPENIA [None]
  - OEDEMA [None]
  - OEDEMA PERIPHERAL [None]
